FAERS Safety Report 10099882 (Version 2)
Quarter: 2014Q2

REPORT INFORMATION
  Report Type: Spontaneous
  Country: US (occurrence: US)
  Receive Date: 20140423
  Receipt Date: 20140423
  Transmission Date: 20141212
  Serious: Yes (Other)
  Sender: FDA-Public Use
  Company Number: US-GILEAD-2013-0072693

PATIENT
  Sex: Female
  Weight: 64.4 kg

DRUGS (12)
  1. LETAIRIS [Suspect]
     Indication: PULMONARY ARTERIAL HYPERTENSION
     Dosage: 5 MG, QD
     Route: 048
     Dates: start: 20130311
  2. REVATIO [Concomitant]
  3. CELEBREX [Concomitant]
  4. ZOCOR [Concomitant]
  5. VITAMIN D                          /00107901/ [Concomitant]
  6. LATANOPROST [Concomitant]
  7. TUMS                               /00193601/ [Concomitant]
  8. PROTONIX [Concomitant]
  9. BYSTOLIC [Concomitant]
  10. ASPIRIN [Concomitant]
  11. PREDNISOLONE ACETATE [Concomitant]
  12. COSOPT [Concomitant]

REACTIONS (4)
  - Drug ineffective [Unknown]
  - Swelling face [Recovering/Resolving]
  - Dyspnoea [Recovering/Resolving]
  - Fatigue [Recovering/Resolving]
